FAERS Safety Report 25297345 (Version 1)
Quarter: 2025Q2

REPORT INFORMATION
  Report Type: Spontaneous
  Country: US (occurrence: US)
  Receive Date: 20250511
  Receipt Date: 20250511
  Transmission Date: 20250716
  Serious: No
  Sender: SANOFI AVENTIS
  Company Number: US-SA-2025SA130738

PATIENT
  Sex: Female

DRUGS (15)
  1. DUPIXENT [Suspect]
     Active Substance: DUPILUMAB
     Indication: Prurigo
     Dosage: 300 MG, QOW
     Route: 058
     Dates: start: 20241227
  2. ALLOPURINOL [Concomitant]
     Active Substance: ALLOPURINOL
  3. CITALOPRAM [Concomitant]
     Active Substance: CITALOPRAM
  4. CYCLOBENZAPRINE [Concomitant]
     Active Substance: CYCLOBENZAPRINE
  5. ETODOLAC [Concomitant]
     Active Substance: ETODOLAC
  6. LOVASTATIN [Concomitant]
     Active Substance: LOVASTATIN
  7. METOPROLOL SUCCINATE [Concomitant]
     Active Substance: METOPROLOL SUCCINATE
  8. OMEPRAZOLE [Concomitant]
     Active Substance: OMEPRAZOLE
  9. OXYBUTYNIN [Concomitant]
     Active Substance: OXYBUTYNIN
  10. OXYBUTYNIN [Concomitant]
     Active Substance: OXYBUTYNIN
  11. OXYCODONE [Concomitant]
     Active Substance: OXYCODONE
  12. PROAIR RESPICLICK [Concomitant]
     Active Substance: ALBUTEROL SULFATE
  13. TOPROL XL [Concomitant]
     Active Substance: METOPROLOL SUCCINATE
  14. VITAMIN B12 [Concomitant]
     Active Substance: CYANOCOBALAMIN
  15. XARELTO [Concomitant]
     Active Substance: RIVAROXABAN

REACTIONS (2)
  - Sleep disorder due to a general medical condition [Unknown]
  - Product use in unapproved indication [Unknown]

NARRATIVE: CASE EVENT DATE: 20250401
